FAERS Safety Report 21463991 (Version 1)
Quarter: 2022Q4

REPORT INFORMATION
  Report Type: Spontaneous
  Country: US (occurrence: US)
  Receive Date: 20221017
  Receipt Date: 20221017
  Transmission Date: 20230113
  Serious: No
  Sender: FDA-Public Use
  Company Number: US-CIPLA LTD.-2022US05444

PATIENT
  Sex: Female

DRUGS (5)
  1. VILAZODONE [Interacting]
     Active Substance: VILAZODONE
     Indication: COVID-19 treatment
     Dosage: UNK, 40 MG
     Route: 048
     Dates: start: 202208, end: 202208
  2. VILAZODONE [Interacting]
     Active Substance: VILAZODONE
     Dosage: UNK, 20 MG DOSE DECREASED
     Route: 048
     Dates: start: 202208
  3. PAXLOVID [Interacting]
     Active Substance: NIRMATRELVIR\RITONAVIR
     Indication: COVID-19 treatment
     Dosage: UNK
     Route: 048
     Dates: start: 202208, end: 202208
  4. PAXLOVID [Interacting]
     Active Substance: NIRMATRELVIR\RITONAVIR
     Dosage: UNK, DOSE DECREASED
     Route: 048
     Dates: start: 202208
  5. ATIVAN [Concomitant]
     Active Substance: LORAZEPAM
     Indication: Product used for unknown indication
     Dosage: UNK
     Route: 065

REACTIONS (7)
  - Taste disorder [Recovered/Resolved]
  - Cough [Recovered/Resolved]
  - Chest discomfort [Recovered/Resolved]
  - Dyspnoea [Unknown]
  - Drug interaction [Unknown]
  - Off label use [Unknown]
  - Product use in unapproved indication [Unknown]

NARRATIVE: CASE EVENT DATE: 20220801
